FAERS Safety Report 12870968 (Version 2)
Quarter: 2017Q1

REPORT INFORMATION
  Report Type: Spontaneous
  Country: US (occurrence: US)
  Receive Date: 20161020
  Receipt Date: 20170124
  Transmission Date: 20170428
  Serious: No
  Sender: FDA-Public Use
  Company Number: US-AMGEN-USASP2016133120

PATIENT
  Age: 76 Year
  Sex: Male
  Weight: 111.3 kg

DRUGS (14)
  1. COSAMINE [Concomitant]
     Dosage: UNK UNK, QD
     Route: 048
     Dates: start: 20140414
  2. ALPHAGAN P [Concomitant]
     Active Substance: BRIMONIDINE TARTRATE
     Dosage: UNK UNK, TID
     Dates: start: 20121120
  3. MILK THISTLE [Concomitant]
     Active Substance: MILK THISTLE
     Dosage: 150 MG, QHS
     Dates: start: 20121120
  4. REPATHA [Suspect]
     Active Substance: EVOLOCUMAB
     Indication: PRODUCT USED FOR UNKNOWN INDICATION
     Dosage: 140 MG, Q2WK
     Route: 065
     Dates: start: 20160531
  5. DIPHENHYDRAMINE HYDROCHLORIDE. [Concomitant]
     Active Substance: DIPHENHYDRAMINE HYDROCHLORIDE
     Dosage: EVERY 4 TO 6 HOUR
     Route: 048
     Dates: start: 20140414
  6. GINKGO BILOBA [Concomitant]
     Active Substance: GINKGO
     Dosage: 400 MG, QD
     Route: 048
     Dates: start: 20131106
  7. AZOPT [Concomitant]
     Active Substance: BRINZOLAMIDE
     Dosage: UNK UNK, TID
     Dates: start: 20121120
  8. ASPIRIN. [Concomitant]
     Active Substance: ASPIRIN
     Dosage: 81 MG, QD
     Route: 048
     Dates: start: 20160718
  9. LEVOTHYROXINE SODIUM. [Concomitant]
     Active Substance: LEVOTHYROXINE SODIUM
     Dosage: 150 MUG, QD
     Route: 048
     Dates: start: 20160615
  10. LUMIGAN [Concomitant]
     Active Substance: BIMATOPROST
     Dosage: 20 DROPS
     Dates: start: 20121120
  11. OMEPRAZOLE MAGNESIUM. [Concomitant]
     Active Substance: OMEPRAZOLE MAGNESIUM
     Dosage: 20 MG, QD
     Route: 048
     Dates: start: 20160615
  12. DOXYCYCLINE HYCLATE. [Concomitant]
     Active Substance: DOXYCYCLINE HYCLATE
     Dosage: 20 MG, BID
     Route: 048
     Dates: start: 20160531
  13. FLUTICASONE PROPIONATE. [Concomitant]
     Active Substance: FLUTICASONE PROPIONATE
     Dosage: 50 MUG, QD
     Dates: start: 20160226
  14. TIMOPTIC [Concomitant]
     Active Substance: TIMOLOL MALEATE
     Dosage: 5 ML, BID
     Dates: start: 20121120

REACTIONS (1)
  - Wrong technique in product usage process [Unknown]
